FAERS Safety Report 5232874-9 (Version None)
Quarter: 2007Q1

REPORT INFORMATION
  Report Type: 
  Country: None (occurrence: None)
  Receive Date: 20070207
  Receipt Date: 20070126
  Transmission Date: 20070707
  Serious: Yes (Death, Hospitalization)
  Sender: FDA-Public Use
  Company Number: GB-NOVOPROD-250825

PATIENT
  Sex: Male
  Weight: 77 kg

DRUGS (36)
  1. NOVOSEVEN [Suspect]
     Indication: POST PROCEDURAL HAEMORRHAGE
     Dosage: 1 DOSE
     Route: 042
     Dates: start: 20060130, end: 20060130
  2. FENTANYL [Concomitant]
     Indication: ANAESTHESIA
     Dosage: .5 MG, UNK
     Route: 042
     Dates: start: 20060130, end: 20060130
  3. PROPOFOL [Concomitant]
     Indication: ANAESTHESIA
     Dosage: 10 MG/ML, QD
     Route: 042
     Dates: start: 20060130, end: 20060202
  4. ATROPINE [Concomitant]
     Indication: PREMEDICATION
     Dosage: .6 MG, QD
     Route: 042
     Dates: start: 20060130, end: 20060130
  5. CALCIUM CHLORIDE ^BIOTIKA^ [Concomitant]
     Indication: HYPOTENSION
     Route: 042
     Dates: start: 20060130, end: 20060130
  6. PHENTOLAMINE MESYLATE [Concomitant]
     Indication: HYPERTENSION
     Dosage: .5 MG, QD
     Route: 042
     Dates: start: 20060130, end: 20060130
  7. POTASSIUM ACETATE [Concomitant]
     Indication: BLOOD POTASSIUM DECREASED
     Dosage: 10 MMOL, UNK
     Route: 042
     Dates: start: 20060130, end: 20060130
  8. PARACETAMOL [Concomitant]
     Indication: PAIN MANAGEMENT
     Dosage: 1 G, QD
     Route: 048
     Dates: start: 20060130
  9. SENNA [Concomitant]
     Indication: CONSTIPATION
     Dosage: 15 MG, QD
     Route: 048
     Dates: start: 20060131, end: 20060201
  10. POTASSIUM CHLORIDE [Concomitant]
     Indication: BLOOD POTASSIUM DECREASED
     Dosage: 20 MMOL, QD
     Route: 042
     Dates: start: 20060130, end: 20060130
  11. VANCOMYCIN HYDROCHLORIDE [Concomitant]
     Indication: ANTIBIOTIC PROPHYLAXIS
     Dosage: 1 MG, QD
     Route: 042
     Dates: start: 20060130, end: 20060130
  12. MORPHINE [Concomitant]
     Indication: ANALGESIC THERAPY
     Dosage: 7.5 MG, QD
     Route: 030
     Dates: start: 20060130, end: 20060130
  13. MORPHINE [Concomitant]
     Dosage: 1 MG, QD
     Route: 042
     Dates: start: 20060131, end: 20060203
  14. HYOSCINE HBR HYT [Concomitant]
     Indication: PREMEDICATION
     Dosage: .5 MG, QD
     Route: 030
     Dates: start: 20060130, end: 20060130
  15. LASIX [Concomitant]
     Indication: OEDEMA
     Dosage: 40 MG, QD
     Route: 042
     Dates: start: 20060130, end: 20060130
  16. FRUSEMIDE [Concomitant]
     Indication: OEDEMA
     Dosage: 40 MG, QD
     Route: 048
     Dates: start: 20060131
  17. ENOXAPARIN SODIUM [Concomitant]
     Indication: THROMBOSIS PROPHYLAXIS
     Dosage: 40 MG, QD
     Route: 042
     Dates: start: 20060131, end: 20060203
  18. NORADRENALINE [Concomitant]
     Indication: HYPOTENSION
     Dosage: 8 MG, QD
     Route: 042
     Dates: start: 20060130, end: 20060203
  19. DOPAMINE HCL [Concomitant]
     Indication: CARDIOGENIC SHOCK
     Dosage: 400 UG, QD
     Route: 042
     Dates: start: 20060130
  20. ENOXIMONE [Concomitant]
     Indication: CARDIAC OUTPUT DECREASED
     Dosage: 400 UG, QD
     Route: 042
     Dates: start: 20060131
  21. EPINEPHRINE [Concomitant]
     Indication: HYPOTENSION
     Dosage: 5 UG, QD
     Route: 042
     Dates: start: 20060131, end: 20060131
  22. ACTRAPID [Concomitant]
     Indication: DIABETES MELLITUS
     Dosage: 50 IU, QD
     Route: 042
     Dates: start: 20060130
  23. HEPARIN [Concomitant]
     Dosage: 25000 IU, QD
     Route: 042
     Dates: start: 20060131, end: 20060201
  24. HEPARIN [Concomitant]
     Dosage: 25000 IU, QD
     Dates: start: 20060202
  25. PROTAMINE SULFATE [Concomitant]
     Dosage: 150 MG, QD
     Route: 042
     Dates: start: 20060130, end: 20060130
  26. MIDAZOLAM HCL [Concomitant]
     Indication: ANAESTHESIA
     Dosage: 10 MG, QD
     Route: 042
     Dates: start: 20060130, end: 20060130
  27. PANCURONIUM [Concomitant]
     Indication: ANAESTHESIA
     Dosage: 12 MG, QD
     Route: 042
     Dates: start: 20060130, end: 20060130
  28. PHENYLEPHRINE [Concomitant]
     Indication: HYPOTENSION
     Dosage: .5 MG, QD
     Route: 042
     Dates: start: 20060130, end: 20060130
  29. GENTAMYCIN-MP [Concomitant]
     Indication: ANTIBIOTIC PROPHYLAXIS
     Dosage: 2 MG/KG, QD
     Route: 042
     Dates: start: 20060130, end: 20060130
  30. ANTIDIURETIC HORMONE [Concomitant]
     Indication: HYPOTENSION
     Dosage: 40 U, QD
     Route: 042
     Dates: start: 20060131, end: 20060202
  31. ANTIDIURETIC HORMONE [Concomitant]
     Indication: CARDIAC OUTPUT DECREASED
  32. ATORVASTATIN CALCIUM [Concomitant]
     Indication: HYPERCHOLESTEROLAEMIA
     Dates: start: 20060204
  33. OMEPRAZOLE [Concomitant]
     Indication: PROPHYLAXIS AGAINST GASTROINTESTINAL ULCER
     Dates: start: 20060201
  34. LACTULOSE [Concomitant]
     Indication: CONSTIPATION
     Dates: start: 20060204
  35. CLONIDINE [Concomitant]
     Indication: CONFUSIONAL STATE
     Dates: start: 20060201
  36. METARAMINOL [Concomitant]
     Indication: HYPOTENSION
     Dates: start: 20060130, end: 20060130

REACTIONS (2)
  - CARDIAC FAILURE [None]
  - INTESTINAL INFARCTION [None]
